FAERS Safety Report 9341043 (Version 2)
Quarter: 2013Q2

REPORT INFORMATION
  Report Type: Report from Study
  Country: AR (occurrence: AR)
  Receive Date: 20130610
  Receipt Date: 20130613
  Transmission Date: 20140414
  Serious: Yes (Other)
  Sender: FDA-Public Use
  Company Number: AR-ASTRAZENECA-2013SE40543

PATIENT
  Age: 21799 Day
  Sex: Male

DRUGS (16)
  1. AZD6140 [Suspect]
     Indication: CORONARY ARTERY DISEASE
     Route: 048
     Dates: start: 20120320, end: 20120904
  2. AZD6140 [Suspect]
     Indication: CORONARY ARTERY DISEASE
     Route: 048
     Dates: start: 20120910, end: 20121111
  3. ASA [Concomitant]
     Route: 048
     Dates: start: 20101026, end: 20121112
  4. METFORMINE [Concomitant]
     Indication: TYPE 2 DIABETES MELLITUS
     Route: 048
  5. ANEMIDOX FERRUM [Concomitant]
     Indication: ANAEMIA
     Route: 048
     Dates: start: 20121112
  6. SUCRALFATO [Concomitant]
     Indication: GASTRITIS
     Route: 048
     Dates: start: 20121212
  7. OMEPRAZOL [Concomitant]
     Indication: PROPHYLAXIS AGAINST GASTROINTESTINAL ULCER
     Route: 048
     Dates: start: 20121112, end: 20121216
  8. OMEPRAZOL [Concomitant]
     Indication: GASTRITIS PROPHYLAXIS
     Route: 048
     Dates: start: 20121112, end: 20121216
  9. OMEPRAZOL [Concomitant]
     Indication: PROPHYLAXIS AGAINST GASTROINTESTINAL ULCER
     Route: 048
     Dates: start: 20121217
  10. OMEPRAZOL [Concomitant]
     Indication: GASTRITIS PROPHYLAXIS
     Route: 048
     Dates: start: 20121217
  11. ISOSORBIDE MONONITRATE [Concomitant]
     Indication: CORONARY ARTERY DISEASE
     Route: 048
     Dates: start: 20101026
  12. ENALAPRIL [Concomitant]
     Indication: HYPERTENSION
     Route: 048
  13. LACTULOSA [Concomitant]
     Indication: GASTRITIS
     Route: 048
     Dates: start: 20121212
  14. CARVEDILOL [Concomitant]
     Indication: CORONARY ARTERY DISEASE
     Route: 048
     Dates: start: 20101026
  15. ALPRAZOLAN [Concomitant]
     Indication: ANXIETY DISORDER
     Route: 048
     Dates: start: 20121217
  16. SINVASTATIN [Concomitant]
     Indication: DYSLIPIDAEMIA
     Route: 048
     Dates: start: 20121217

REACTIONS (1)
  - Nasopharyngeal cancer [Not Recovered/Not Resolved]
